FAERS Safety Report 19089504 (Version 1)
Quarter: 2021Q2

REPORT INFORMATION
  Report Type: Spontaneous
  Country: US (occurrence: US)
  Receive Date: 20210403
  Receipt Date: 20210403
  Transmission Date: 20210717
  Serious: Yes (Hospitalization, Other)
  Sender: FDA-Public Use
  Company Number: US-CIPLA LTD.-2021US02558

PATIENT

DRUGS (26)
  1. ETOPOSIDE. [Suspect]
     Active Substance: ETOPOSIDE
     Dosage: 46.2 MG (CYCLE 1, DAY 2)
     Route: 042
  2. ETOPOSIDE. [Suspect]
     Active Substance: ETOPOSIDE
     Dosage: 44 MG (CYCLE 3 DAY 1)
     Route: 042
  3. VINCRISTINE [Suspect]
     Active Substance: VINCRISTINE
     Dosage: 0.4 MG (CYCLE 3 DAY 1)
     Route: 042
  4. CARBOPLATIN. [Suspect]
     Active Substance: CARBOPLATIN
     Dosage: 107.8 MG DAY 2 OF CYCLE 1
     Route: 042
  5. ETOPOSIDE. [Suspect]
     Active Substance: ETOPOSIDE
     Dosage: 46 MG (CYCLE 4 DAY 1)
     Route: 042
  6. ETOPOSIDE. [Suspect]
     Active Substance: ETOPOSIDE
     Dosage: 52 MG (CYCLE 6 DAY 2)
     Route: 042
  7. CARBOPLATIN. [Suspect]
     Active Substance: CARBOPLATIN
     Dosage: 145.6 MG (CYCLE 6 DAY 1)
     Route: 042
  8. ETOPOSIDE. [Suspect]
     Active Substance: ETOPOSIDE
     Indication: CONGENITAL RETINOBLASTOMA
     Dosage: 46.2 MG (CYCLE 1, DAY 1)
     Route: 042
  9. ETOPOSIDE. [Suspect]
     Active Substance: ETOPOSIDE
     Dosage: 52 MG (CYCLE 5 DAY 1)
     Route: 042
  10. ETOPOSIDE. [Suspect]
     Active Substance: ETOPOSIDE
     Dosage: 52 MG (CYCLE 6 DAY 1)
     Route: 042
  11. VINCRISTINE [Suspect]
     Active Substance: VINCRISTINE
     Dosage: 0.4 MG (CYCLE 2 DAY 1)
     Route: 042
  12. CARBOPLATIN. [Suspect]
     Active Substance: CARBOPLATIN
     Dosage: 123.2 MILLIGRAM (CYCLE 3 DAY 1)
     Route: 042
  13. ETOPOSIDE. [Suspect]
     Active Substance: ETOPOSIDE
     Dosage: 46 MG (CYCLE 4 DAY 2)
     Route: 042
  14. ETOPOSIDE. [Suspect]
     Active Substance: ETOPOSIDE
     Dosage: 52 MG (CYCLE 5 DAY 2)
     Route: 042
  15. CARBOPLATIN. [Suspect]
     Active Substance: CARBOPLATIN
     Dosage: 145.6 MG (CYCLE 5 DAY 1)
     Route: 042
  16. ETOPOSIDE. [Suspect]
     Active Substance: ETOPOSIDE
     Dosage: 46.2 MG (CYCLE 2, DAY 1)
     Route: 042
  17. VINCRISTINE [Suspect]
     Active Substance: VINCRISTINE
     Dosage: 0.4 MG (CYCLE 6 DAY 1)
     Route: 042
  18. CARBOPLATIN. [Suspect]
     Active Substance: CARBOPLATIN
     Dosage: 107.8 MG (CYCLE 2 DAY 1)
     Route: 042
  19. ETOPOSIDE. [Suspect]
     Active Substance: ETOPOSIDE
     Dosage: 46.2 MG (CYCLE 2, DAY 2)
     Route: 042
  20. CARBOPLATIN. [Suspect]
     Active Substance: CARBOPLATIN
     Indication: CONGENITAL RETINOBLASTOMA
     Dosage: 107.8 MG DAY 1 OF CYCLE 1
     Route: 042
  21. CARBOPLATIN. [Suspect]
     Active Substance: CARBOPLATIN
     Dosage: 128.8 MG (CYCLE 4 DAY 1)
     Route: 042
  22. ETOPOSIDE. [Suspect]
     Active Substance: ETOPOSIDE
     Dosage: 44 MG (CYCLE 3 DAY 2)
     Route: 042
  23. VINCRISTINE [Suspect]
     Active Substance: VINCRISTINE
     Dosage: 0.4 MG (CYCLE 4 DAY 1)
     Route: 042
  24. CARBOPLATIN. [Suspect]
     Active Substance: CARBOPLATIN
     Dosage: 107.8 MG (CYCLE 2 DAY 2)
     Route: 042
  25. VINCRISTINE [Suspect]
     Active Substance: VINCRISTINE
     Indication: CONGENITAL RETINOBLASTOMA
     Dosage: 0.4 MG (CYCLE 1 DAY 1)
     Route: 042
  26. VINCRISTINE [Suspect]
     Active Substance: VINCRISTINE
     Dosage: 0.4 MG (CYCLE 5 DAY 1)
     Route: 042

REACTIONS (7)
  - Thrombocytopenia [Unknown]
  - Toxicity to various agents [Unknown]
  - Anaemia [Unknown]
  - Sepsis [Unknown]
  - Neutropenia [Unknown]
  - Dehydration [Unknown]
  - Cytopenia [Unknown]
